FAERS Safety Report 7755258-8 (Version None)
Quarter: 2011Q3

REPORT INFORMATION
  Report Type: 
  Country: None (occurrence: None)
  Receive Date: 20110913
  Receipt Date: 20110901
  Transmission Date: 20111222
  Serious: Yes (Death, Hospitalization)
  Sender: FDA-Public Use
  Company Number: WAES 1109USA00171

PATIENT
  Age: 43 Year
  Sex: Male
  Weight: 71.6683 kg

DRUGS (42)
  1. ETOPOSIDE [Suspect]
     Indication: MULTIPLE MYELOMA
     Dates: start: 20100824
  2. ETOPOSIDE [Suspect]
     Indication: MULTIPLE MYELOMA
     Dates: start: 20100701
  3. DEMEROL [Concomitant]
  4. DEPO-TESTOSTERONE [Concomitant]
  5. MORPHINE SULFATE [Concomitant]
  6. VITAMINS (UNSPECIFIED) [Concomitant]
  7. DECADRON [Suspect]
     Indication: MULTIPLE MYELOMA
     Dosage: PO ; PO
     Route: 048
     Dates: start: 20100925
  8. DECADRON [Suspect]
     Indication: MULTIPLE MYELOMA
     Dosage: PO ; PO
     Route: 048
     Dates: start: 20100701
  9. THALIDOMIDE [Suspect]
     Indication: MULTIPLE MYELOMA
     Dates: start: 20100701
  10. THALIDOMIDE [Suspect]
     Indication: MULTIPLE MYELOMA
     Dates: start: 20100925
  11. LACTULOSE [Concomitant]
  12. LYRICA [Concomitant]
  13. SYNTHROID [Concomitant]
  14. DECADRON [Suspect]
     Dosage: 12 MG/IV
     Route: 042
     Dates: start: 20101208, end: 20101208
  15. ACYCLOVIR [Concomitant]
  16. BACLOFEN [Concomitant]
  17. NORTRIPTYLINE HCL [Concomitant]
  18. CYCLOPHOSPHAMIDE [Suspect]
     Indication: MULTIPLE MYELOMA
     Dates: start: 20100701
  19. SIROLIMUS [Suspect]
     Indication: MULTIPLE MYELOMA
     Dates: start: 20100701
  20. SIROLIMUS [Suspect]
     Indication: MULTIPLE MYELOMA
     Dates: start: 20100925
  21. ACTIQ [Concomitant]
  22. AMBIEN CR [Concomitant]
  23. LEVAQUIN [Concomitant]
  24. NEXIUM [Concomitant]
  25. CISPLATIN [Suspect]
     Indication: MULTIPLE MYELOMA
     Dates: start: 20100701
  26. CISPLATIN [Suspect]
     Indication: MULTIPLE MYELOMA
     Dates: start: 20100824
  27. VELCADE [Suspect]
     Indication: MULTIPLE MYELOMA
     Dates: start: 20100701
  28. VELCADE [Suspect]
     Indication: MULTIPLE MYELOMA
     Dates: start: 20100925
  29. KYTRIL [Concomitant]
  30. ZOLOFT [Concomitant]
  31. MARINOL [Concomitant]
  32. GABAPENTIN [Concomitant]
  33. HYDROCORTISONE [Concomitant]
  34. OXYCODONE [Concomitant]
  35. TESTOSTERONE CYPIONATE [Concomitant]
  36. CC-4047 UNK [Suspect]
     Indication: MULTIPLE MYELOMA
     Dosage: 4 MG/DAILY/PO ; 4 MG/DAILY/PO ; 4 MG/DAILY/PO
     Route: 048
     Dates: start: 20100714
  37. CC-4047 UNK [Suspect]
     Indication: MULTIPLE MYELOMA
     Dosage: 4 MG/DAILY/PO ; 4 MG/DAILY/PO ; 4 MG/DAILY/PO
     Route: 048
     Dates: start: 20101211, end: 20101211
  38. CC-4047 UNK [Suspect]
     Indication: MULTIPLE MYELOMA
     Dosage: 4 MG/DAILY/PO ; 4 MG/DAILY/PO ; 4 MG/DAILY/PO
     Route: 048
     Dates: start: 20101213, end: 20101213
  39. DOXORUBICIN HCL [Suspect]
     Indication: MULTIPLE MYELOMA
     Dates: start: 20100925
  40. DOXORUBICIN HCL [Suspect]
     Indication: MULTIPLE MYELOMA
     Dates: start: 20100701
  41. MESNA [Suspect]
     Indication: MULTIPLE MYELOMA
     Dates: start: 20100701
  42. OXYCONTIN [Concomitant]

REACTIONS (14)
  - PULMONARY HAEMORRHAGE [None]
  - PAIN [None]
  - EPISTAXIS [None]
  - IMPAIRED HEALING [None]
  - MULTIPLE MYELOMA [None]
  - C-REACTIVE PROTEIN INCREASED [None]
  - CHILLS [None]
  - THROMBOCYTOPENIA [None]
  - NAUSEA [None]
  - CONFUSIONAL STATE [None]
  - PYREXIA [None]
  - ABDOMINAL PAIN [None]
  - DISEASE RECURRENCE [None]
  - NEOPLASM PROGRESSION [None]
